FAERS Safety Report 7636937-X (Version None)
Quarter: 2011Q3

REPORT INFORMATION
  Report Type: 
  Country: None (occurrence: None)
  Receive Date: 20110726
  Receipt Date: 20110714
  Transmission Date: 20111222
  Serious: Yes (Disabling, Other)
  Sender: FDA-Public Use
  Company Number: US-ASTRAZENECA-2011SE42171

PATIENT
  Age: 53 Year
  Sex: Female

DRUGS (5)
  1. SEROQUEL [Suspect]
     Indication: BIPOLAR DISORDER
     Route: 048
  2. CEVELA [Concomitant]
     Indication: FIBROMYALGIA
  3. SEROQUEL [Suspect]
     Indication: DEPRESSION
     Route: 048
  4. CYMBALTA [Concomitant]
     Indication: FIBROMYALGIA
  5. LYRICA [Concomitant]
     Indication: FIBROMYALGIA

REACTIONS (5)
  - WRIST FRACTURE [None]
  - FATIGUE [None]
  - NERVE INJURY [None]
  - NEUROPATHY PERIPHERAL [None]
  - FIBROMYALGIA [None]
